FAERS Safety Report 8599344-1 (Version None)
Quarter: 2012Q3

REPORT INFORMATION
  Report Type: 
  Country: None (occurrence: None)
  Receive Date: 20120816
  Receipt Date: 20120809
  Transmission Date: 20120928
  Serious: Yes (Other)
  Sender: FDA-Public Use
  Company Number: FR-ROCHE-1062953

PATIENT
  Age: 70 Year
  Sex: Female

DRUGS (3)
  1. ZELBORAF [Suspect]
     Dosage: 2 TABLETS
  2. ZELBORAF [Suspect]
     Indication: METASTATIC MALIGNANT MELANOMA
     Dosage: 2 TABLETS
  3. ZELBORAF [Suspect]
     Dosage: 3 TABLETS
     Dates: start: 20120518

REACTIONS (4)
  - PYREXIA [None]
  - RASH GENERALISED [None]
  - DISEASE PROGRESSION [None]
  - HYPERCALCAEMIA [None]
